FAERS Safety Report 26044867 (Version 1)
Quarter: 2025Q4

REPORT INFORMATION
  Report Type: Spontaneous
  Country: US (occurrence: US)
  Receive Date: 20251114
  Receipt Date: 20251114
  Transmission Date: 20260117
  Serious: No
  Sender: BRISTOL-MYERS SQUIBB COMPANY
  Company Number: US-BRISTOL-MYERS SQUIBB COMPANY-2025-154677

PATIENT
  Age: 90 Year
  Sex: Male
  Weight: 88.93 kg

DRUGS (18)
  1. ELIQUIS [Suspect]
     Active Substance: APIXABAN
     Indication: Product used for unknown indication
  2. BRUKINSA [Suspect]
     Active Substance: ZANUBRUTINIB
     Indication: Chronic lymphocytic leukaemia
     Route: 048
     Dates: start: 20230424
  3. BRUKINSA [Suspect]
     Active Substance: ZANUBRUTINIB
     Route: 048
     Dates: start: 20230424
  4. BRUKINSA [Suspect]
     Active Substance: ZANUBRUTINIB
     Route: 048
     Dates: start: 20230424
  5. BRUKINSA [Suspect]
     Active Substance: ZANUBRUTINIB
     Route: 048
     Dates: start: 20230424
  6. BRUKINSA [Suspect]
     Active Substance: ZANUBRUTINIB
     Route: 048
     Dates: start: 20230424
  7. BRUKINSA [Suspect]
     Active Substance: ZANUBRUTINIB
     Route: 048
     Dates: start: 20230424
  8. ATENOLOL [Concomitant]
     Active Substance: ATENOLOL
     Indication: Product used for unknown indication
  9. ATORVASTATIN CALCIUM [Concomitant]
     Active Substance: ATORVASTATIN CALCIUM
     Indication: Product used for unknown indication
  10. CALCIUM CARBONATE [Concomitant]
     Active Substance: CALCIUM CARBONATE
     Indication: Product used for unknown indication
  11. FERROUS SULFATE [Concomitant]
     Active Substance: FERROUS SULFATE
     Indication: Product used for unknown indication
  12. GLIPIZIDE [Concomitant]
     Active Substance: GLIPIZIDE
     Indication: Product used for unknown indication
  13. ISOSORBIDE MONONITRATE [Concomitant]
     Active Substance: ISOSORBIDE MONONITRATE
     Indication: Product used for unknown indication
  14. LEVOTHYROXINE SODIUM [Concomitant]
     Active Substance: LEVOTHYROXINE SODIUM
     Indication: Product used for unknown indication
  15. METFORMIN HYDROCHLORIDE [Concomitant]
     Active Substance: METFORMIN HYDROCHLORIDE
     Indication: Product used for unknown indication
  16. VITAMINS [Concomitant]
     Active Substance: VITAMINS
     Indication: Product used for unknown indication
  17. TADALAFIL [Concomitant]
     Active Substance: TADALAFIL
     Indication: Product used for unknown indication
  18. TESTOSTERONE [Concomitant]
     Active Substance: TESTOSTERONE
     Indication: Product used for unknown indication

REACTIONS (10)
  - Blood glucose abnormal [Unknown]
  - Contusion [Unknown]
  - Nasal congestion [Recovering/Resolving]
  - Diarrhoea [Unknown]
  - Hypnic headache [Unknown]
  - Dyspepsia [Unknown]
  - Heart rate decreased [Unknown]
  - Product dose omission issue [Unknown]
  - Rash erythematous [Not Recovered/Not Resolved]
  - Rhinorrhoea [Unknown]

NARRATIVE: CASE EVENT DATE: 20230401
